FAERS Safety Report 6042261-1 (Version None)
Quarter: 2009Q1

REPORT INFORMATION
  Report Type: 
  Country: None (occurrence: None)
  Receive Date: 20090116
  Receipt Date: 20090106
  Transmission Date: 20090719
  Serious: Yes (Hospitalization, Other)
  Sender: FDA-Public Use
  Company Number: US-PFIZER INC-2008063171

PATIENT
  Sex: Female
  Weight: 92.1 kg

DRUGS (9)
  1. CHANTIX [Suspect]
     Dates: start: 20061101, end: 20070101
  2. GABAPENTIN [Suspect]
     Indication: TREMOR
  3. HYZAAR [Concomitant]
     Dosage: 50/25MG
     Route: 048
  4. ALLERGY MEDICATION [Concomitant]
     Indication: HYPERSENSITIVITY
  5. CLARINEX [Concomitant]
  6. MONTELUKAST SODIUM [Concomitant]
     Dates: end: 20070202
  7. ALBUTEROL [Concomitant]
     Dosage: 2 PUFFS EVERY 4 HOURS
  8. PROMETHAZINE [Concomitant]
  9. CYCLOBENZAPRINE HCL [Concomitant]

REACTIONS (58)
  - ABASIA [None]
  - ABNORMAL DREAMS [None]
  - ABSCESS LIMB [None]
  - AGGRESSION [None]
  - AMNESIA [None]
  - ANGER [None]
  - ARTHRALGIA [None]
  - ASTHENIA [None]
  - BIPOLAR DISORDER [None]
  - BLOOD GLUCOSE INCREASED [None]
  - BLOOD PHOSPHORUS DECREASED [None]
  - BLOOD POTASSIUM DECREASED [None]
  - CARDIAC FAILURE CONGESTIVE [None]
  - CRYING [None]
  - DEPRESSED MOOD [None]
  - DRY EYE [None]
  - EMOTIONAL DISORDER [None]
  - EMOTIONAL DISTRESS [None]
  - EYE DISORDER [None]
  - EYELID FUNCTION DISORDER [None]
  - GENERAL PHYSICAL HEALTH DETERIORATION [None]
  - HEAD INJURY [None]
  - HEPATIC STEATOSIS [None]
  - HYPERPHAGIA [None]
  - HYPERTONIC BLADDER [None]
  - IMPAIRED WORK ABILITY [None]
  - INSOMNIA [None]
  - INTRACRANIAL HYPOTENSION [None]
  - IRRITABILITY [None]
  - LIBIDO DECREASED [None]
  - LOSS OF CONSCIOUSNESS [None]
  - LYMPHADENOPATHY [None]
  - MEMORY IMPAIRMENT [None]
  - MENINGITIS [None]
  - MOOD SWINGS [None]
  - MYALGIA [None]
  - NAUSEA [None]
  - NECK INJURY [None]
  - NIGHTMARE [None]
  - OTITIS EXTERNA [None]
  - PAIN [None]
  - PANIC ATTACK [None]
  - PARAESTHESIA [None]
  - PHOTOSENSITIVITY REACTION [None]
  - PNEUMONIA [None]
  - POST CONCUSSION SYNDROME [None]
  - POST LUMBAR PUNCTURE SYNDROME [None]
  - PYELONEPHRITIS [None]
  - PYREXIA [None]
  - RESTLESS LEGS SYNDROME [None]
  - RESTLESSNESS [None]
  - RHINITIS ALLERGIC [None]
  - SUICIDAL IDEATION [None]
  - SUICIDE ATTEMPT [None]
  - TREMOR [None]
  - UROSEPSIS [None]
  - VOMITING [None]
  - WEIGHT INCREASED [None]
